FAERS Safety Report 8728293 (Version 2)
Quarter: 2012Q4

REPORT INFORMATION
  Report Type: 
  Country: US (occurrence: US)
  Receive Date: 20120817
  Receipt Date: 20121226
  Transmission Date: 20130627
  Serious: Yes (Hospitalization, Disabling)
  Sender: FDA-Public Use
  Company Number: US-BAYER-2012-081802

PATIENT
  Age: 36 Year
  Sex: Female
  Weight: 92.06 kg

DRUGS (16)
  1. YAZ [Suspect]
     Indication: CONTRACEPTION
     Dosage: UNK
     Dates: start: 2007, end: 2009
  2. YAZ [Suspect]
     Indication: MENSTRUAL CYCLE MANAGEMENT
  3. YAZ [Suspect]
     Indication: DEPRESSION
  4. YAZ [Suspect]
     Indication: PREMENSTRUAL SYNDROME
  5. ALBUTEROL [Concomitant]
     Indication: ASTHMA
     Dosage: UNK
     Dates: start: 1987
  6. LASIX [Concomitant]
     Dosage: 40 mg, BID, daily
     Route: 048
     Dates: start: 2003
  7. ATIVAN [Concomitant]
     Indication: ANXIETY
     Dosage: UNK UNK, PRN
     Route: 048
  8. ZOLOFT [Concomitant]
     Dosage: 100 mg, daily
     Route: 048
  9. NORTRIPTYLINE [Concomitant]
     Dosage: 40 mg, daily
     Route: 048
  10. BENADRYL [Concomitant]
     Indication: MULTIPLE ALLERGIES
     Dosage: 50 mg at hour of sleep
     Route: 048
  11. BENADRYL [Concomitant]
     Indication: INSOMNIA NOS
  12. IMITREX [Concomitant]
     Indication: MIGRAINE
     Dosage: 100 mg, PRN
     Route: 048
  13. FISH OIL [Concomitant]
     Indication: TACHYCARDIA
  14. FISH OIL [Concomitant]
     Indication: ELEVATED BP
  15. TOPROL XL [Concomitant]
     Indication: TACHYCARDIA
  16. TOPROL XL [Concomitant]
     Indication: ELEVATED BP

REACTIONS (6)
  - Cerebrovascular accident [None]
  - Amnesia [None]
  - Hemiplegia [None]
  - Fatigue [None]
  - Panic attack [None]
  - Depression [None]
